FAERS Safety Report 7776539-8 (Version None)
Quarter: 2011Q3

REPORT INFORMATION
  Report Type: 
  Country: None (occurrence: None)
  Receive Date: 20110922
  Receipt Date: 20110922
  Transmission Date: 20111222
  Serious: No
  Sender: FDA-Public Use
  Company Number: None

PATIENT
  Age: 60 Year
  Sex: Female
  Weight: 72.5755 kg

DRUGS (1)
  1. GAMMAGARD LIQUID [Suspect]
     Indication: HYPOGAMMAGLOBULINAEMIA
     Dosage: 35 GRAMS (350 ML) IV ONE TIME EVERY 3 WEEKS
     Route: 042
     Dates: start: 20080101

REACTIONS (4)
  - PYREXIA [None]
  - PRODUCT QUALITY ISSUE [None]
  - HEADACHE [None]
  - CHILLS [None]
